FAERS Safety Report 6504963-X (Version None)
Quarter: 2009Q4

REPORT INFORMATION
  Report Type: 
  Country: None (occurrence: None)
  Receive Date: 20091218
  Receipt Date: 20091204
  Transmission Date: 20100525
  Serious: Yes (Death)
  Sender: FDA-Public Use
  Company Number: JP-MYLANLABS-2009S1020289

PATIENT
  Age: 59 Year
  Sex: Female

DRUGS (6)
  1. METHOTREXATE [Suspect]
     Indication: RHEUMATOID ARTHRITIS
     Route: 048
     Dates: start: 20060601, end: 20080920
  2. REMICADE [Suspect]
     Indication: RHEUMATOID ARTHRITIS
     Route: 042
     Dates: start: 20060701, end: 20080529
  3. EVISTA [Concomitant]
     Indication: OSTEOPOROSIS
     Route: 048
     Dates: end: 20080920
  4. LOBU [Concomitant]
     Indication: ANALGESIC THERAPY
     Route: 048
     Dates: end: 20080920
  5. AZUCURENIN S [Concomitant]
     Indication: DRUG USE FOR UNKNOWN INDICATION
     Route: 048
     Dates: end: 20080920
  6. KAMAG G [Concomitant]
     Indication: DRUG USE FOR UNKNOWN INDICATION
     Route: 048
     Dates: end: 20080920

REACTIONS (1)
  - MALIGNANT MELANOMA [None]
